FAERS Safety Report 17512723 (Version 1)
Quarter: 2020Q1

REPORT INFORMATION
  Report Type: Spontaneous
  Country: US (occurrence: US)
  Receive Date: 20200306
  Receipt Date: 20200306
  Transmission Date: 20200409
  Serious: Yes (Death, Life-Threatening, Hospitalization, Other)
  Sender: FDA-Public Use
  Company Number: US-BAUSCH-BL-2020-006507

PATIENT
  Age: 19 Year

DRUGS (1)
  1. METFORMIN [Suspect]
     Active Substance: METFORMIN HYDROCHLORIDE
     Indication: DIABETES MELLITUS
     Route: 065

REACTIONS (4)
  - Cardiac failure [Fatal]
  - Friedreich^s ataxia [Unknown]
  - Ventricular arrhythmia [Not Recovered/Not Resolved]
  - Condition aggravated [Unknown]
